FAERS Safety Report 25147803 (Version 4)
Quarter: 2025Q4

REPORT INFORMATION
  Report Type: Spontaneous
  Country: US (occurrence: US)
  Receive Date: 20250402
  Receipt Date: 20251012
  Transmission Date: 20260117
  Serious: No
  Sender: SANOFI AVENTIS
  Company Number: US-SA-2025SA092609

PATIENT
  Age: 35 Year
  Sex: Male
  Weight: 84.55 kg

DRUGS (8)
  1. FABRAZYME [Suspect]
     Active Substance: AGALSIDASE BETA
     Indication: Fabry^s disease
     Dosage: 90 MG, QOW
     Route: 042
     Dates: start: 20201012, end: 20250312
  2. FABRAZYME [Suspect]
     Active Substance: AGALSIDASE BETA
     Dosage: 90 MG, QOW
     Route: 042
     Dates: start: 20250326
  3. FABRAZYME [Suspect]
     Active Substance: AGALSIDASE BETA
     Dosage: 100 MG, QOW
     Route: 042
     Dates: start: 2025
  4. DIPHENHYDRAMINE [Concomitant]
     Active Substance: DIPHENHYDRAMINE
  5. SODIUM CHLORIDE [Concomitant]
     Active Substance: SODIUM CHLORIDE
  6. SODIUM CHLORIDE [Concomitant]
     Active Substance: SODIUM CHLORIDE
  7. DEXAMETHASONE [Concomitant]
     Active Substance: DEXAMETHASONE
     Dosage: UNK
  8. STERILE WATER [Concomitant]
     Active Substance: WATER

REACTIONS (2)
  - Weight fluctuation [Unknown]
  - Abdominal pain upper [Unknown]

NARRATIVE: CASE EVENT DATE: 20250312
